FAERS Safety Report 7921225-4 (Version None)
Quarter: 2011Q4

REPORT INFORMATION
  Report Type: 
  Country: None (occurrence: None)
  Receive Date: 20111117
  Receipt Date: 20111115
  Transmission Date: 20120403
  Serious: No
  Sender: FDA-Public Use
  Company Number: US-PFIZER INC-2011280017

PATIENT
  Sex: Male

DRUGS (4)
  1. ENALAPRIL [Concomitant]
     Dosage: UNK
  2. CADUET [Suspect]
     Indication: BLOOD PRESSURE ABNORMAL
     Dosage: [AMLODIPINE 5 MG] /[ATORVASTATIN 20MG], ONCE A DAY
     Route: 048
     Dates: start: 20060922
  3. BENICAR HCT [Concomitant]
     Dosage: UNK
  4. CADUET [Suspect]
     Indication: BLOOD CHOLESTEROL ABNORMAL

REACTIONS (1)
  - HYPERSENSITIVITY [None]
